FAERS Safety Report 8440743-6 (Version None)
Quarter: 2012Q2

REPORT INFORMATION
  Report Type: 
  Country: None (occurrence: None)
  Receive Date: 20120615
  Receipt Date: 20120606
  Transmission Date: 20120825
  Serious: Yes (Other)
  Sender: FDA-Public Use
  Company Number: US-GILEAD-2012-0055153

PATIENT
  Sex: Female

DRUGS (9)
  1. AZTREONAM [Suspect]
     Indication: BRONCHIECTASIS
     Dosage: 75 MG, TID
     Route: 055
     Dates: start: 20120217, end: 20120315
  2. RALOXIFENE HCL [Concomitant]
     Indication: MENOPAUSE
     Dosage: UNK
     Dates: start: 20091007
  3. AZTREONAM [Suspect]
     Indication: BRONCHIECTASIS
     Dosage: 75 MG, TID
     Route: 055
     Dates: start: 20120412, end: 20120509
  4. AZTREONAM [Suspect]
     Dosage: 75 MG, TID
     Route: 055
     Dates: start: 20111221, end: 20120103
  5. ALBUTEROL [Concomitant]
     Indication: BRONCHIECTASIS
     Dosage: UNK
     Dates: start: 20091204
  6. PLACEBO [Suspect]
     Indication: BRONCHIECTASIS
     Dosage: 75 MG, TID
     Route: 055
     Dates: start: 20120217, end: 20120315
  7. AZELASTINE HCL [Concomitant]
     Indication: SINUSITIS
     Dosage: UNK
     Dates: start: 20100209
  8. PLACEBO [Suspect]
     Dosage: 75 MG, TID
     Route: 055
     Dates: start: 20111221, end: 20120103
  9. TRAVOPROST [Concomitant]
     Indication: GLAUCOMA
     Dosage: UNK
     Dates: start: 20091030

REACTIONS (1)
  - DRUG HYPERSENSITIVITY [None]
